FAERS Safety Report 9004910 (Version 1)
Quarter: 2012Q4

REPORT INFORMATION
  Report Type: Spontaneous
  Country: ES (occurrence: None)
  Receive Date: 20121227
  Receipt Date: 20121227
  Transmission Date: 20130627
  Serious: Yes (Hospitalization)
  Sender: FDA-Public Use
  Company Number: ES-ACCORD-015654

PATIENT
  Age: 38 Year
  Sex: Male

DRUGS (2)
  1. IRINOTECAN HYDROCHLORIDE [Suspect]
     Indication: NASOPHARYNGEAL LYMPHOEPITHELIOMA STAGE II
  2. CISPLATIN (CISPLATIN) (5 MILLIGRAM) (CISPLATIN) [Suspect]

REACTIONS (10)
  - Hypomagnesaemia [None]
  - Diarrhoea [None]
  - Bone marrow failure [None]
  - Hypovolaemia [None]
  - Septic shock [None]
  - Hyponatraemia [None]
  - Hypokalaemia [None]
  - General physical health deterioration [None]
  - Pyrexia [None]
  - Electrolyte imbalance [None]
